FAERS Safety Report 16271202 (Version 1)
Quarter: 2019Q2

REPORT INFORMATION
  Report Type: Spontaneous
  Country: US (occurrence: US)
  Receive Date: 20190503
  Receipt Date: 20190503
  Transmission Date: 20190711
  Serious: Yes (Other)
  Sender: FDA-Public Use
  Company Number: US-TEVA-2019-US-1044208

PATIENT
  Age: 77 Year
  Sex: Male

DRUGS (1)
  1. OXYBUTYNIN CHLORIDE TABLETS [Suspect]
     Active Substance: OXYBUTYNIN CHLORIDE
     Route: 065

REACTIONS (2)
  - Lower urinary tract symptoms [Recovered/Resolved]
  - Urinary retention [Unknown]
